FAERS Safety Report 7584713-9 (Version None)
Quarter: 2011Q2

REPORT INFORMATION
  Report Type: 
  Country: None (occurrence: None)
  Receive Date: 20110630
  Receipt Date: 20110617
  Transmission Date: 20111010
  Serious: Yes (Other)
  Sender: FDA-Public Use
  Company Number: PHHY2011CH46763

PATIENT
  Sex: Female
  Weight: 50 kg

DRUGS (4)
  1. ZOLEDRONIC ACID [Suspect]
     Indication: OSTEOPOROSIS
     Route: 042
     Dates: start: 20110412
  2. SYMBICORT [Concomitant]
  3. EXFORGE HCT [Concomitant]
     Dosage: 10 MG/160 MG
     Dates: start: 20110101
  4. CALCIMAGON-D3 [Concomitant]

REACTIONS (14)
  - PARAESTHESIA [None]
  - HYPOAESTHESIA [None]
  - BURNING SENSATION [None]
  - URTICARIA [None]
  - OEDEMA PERIPHERAL [None]
  - PRURITUS [None]
  - BLOOD IMMUNOGLOBULIN E INCREASED [None]
  - DECREASED APPETITE [None]
  - RASH MACULAR [None]
  - PAIN [None]
  - ANXIETY [None]
  - RASH PAPULAR [None]
  - NEURALGIA [None]
  - ASTHENIA [None]
